FAERS Safety Report 10340141 (Version 1)
Quarter: 2014Q3

REPORT INFORMATION
  Report Type: Spontaneous
  Country: US (occurrence: US)
  Receive Date: 20140724
  Receipt Date: 20140724
  Transmission Date: 20150326
  Serious: No
  Sender: FDA-Public Use
  Company Number: US-009507513-1405USA014996

PATIENT
  Age: 69 Year
  Sex: Female

DRUGS (1)
  1. COMPLEX 15 FACE CREAM [Suspect]
     Active Substance: DIMETHICONE\LECITHIN
     Indication: PRODUCT USED FOR UNKNOWN INDICATION
     Dosage: UNK, UNKNOWN
     Route: 061

REACTIONS (1)
  - Drug effect decreased [Unknown]
